FAERS Safety Report 12551380 (Version 1)
Quarter: 2016Q3

REPORT INFORMATION
  Report Type: Spontaneous
  Country: US (occurrence: US)
  Receive Date: 20160713
  Receipt Date: 20160713
  Transmission Date: 20161109
  Serious: No
  Sender: FDA-Public Use
  Company Number: US-TEVA-657394USA

PATIENT
  Age: 34 Year
  Sex: Female

DRUGS (1)
  1. ZECUITY [Suspect]
     Active Substance: SUMATRIPTAN SUCCINATE
     Route: 062

REACTIONS (8)
  - Menstruation delayed [Unknown]
  - Application site erosion [Unknown]
  - Device battery issue [Unknown]
  - Application site irritation [Unknown]
  - Application site pain [Unknown]
  - Application site paraesthesia [Unknown]
  - Application site erythema [Unknown]
  - Application site scab [Unknown]

NARRATIVE: CASE EVENT DATE: 201603
